FAERS Safety Report 9495138 (Version 1)
Quarter: 2013Q3

REPORT INFORMATION
  Report Type: Spontaneous
  Country: DK (occurrence: FR)
  Receive Date: 20130903
  Receipt Date: 20130903
  Transmission Date: 20140515
  Serious: Yes (Disabling)
  Sender: FDA-Public Use
  Company Number: FR-FRI-1000048334

PATIENT
  Age: 74 Year
  Sex: Female

DRUGS (5)
  1. ESCITALOPRAM [Suspect]
     Dosage: 30 MG
     Route: 048
  2. ZYPREXA [Suspect]
     Dosage: 10 MG
     Route: 048
  3. ZYPREXA [Suspect]
     Dosage: 5 MG
     Route: 048
  4. EUPANTOL [Concomitant]
     Dosage: 20 MG
  5. ART [Concomitant]
     Dosage: 50 MG

REACTIONS (2)
  - Camptocormia [Not Recovered/Not Resolved]
  - Overdose [Not Recovered/Not Resolved]
